FAERS Safety Report 9797683 (Version 2)
Quarter: 2014Q1

REPORT INFORMATION
  Report Type: Spontaneous
  Country: US (occurrence: US)
  Receive Date: 20140106
  Receipt Date: 20140328
  Transmission Date: 20141002
  Serious: No
  Sender: FDA-Public Use
  Company Number: US-B.I. PHARMACEUTICALS,INC./RIDGEFIELD-2013-BI-43976BP

PATIENT
  Age: 70 Year
  Sex: Male
  Weight: 76.2 kg

DRUGS (6)
  1. PRADAXA [Suspect]
     Indication: ATRIAL FIBRILLATION
     Dosage: 300 MG
     Route: 048
     Dates: start: 2011, end: 20131206
  2. PRADAXA [Suspect]
     Dosage: 300 MG
     Route: 048
     Dates: start: 20131223
  3. LISINOPRIL [Concomitant]
     Indication: HYPERTENSION
     Dosage: 20 MG
     Route: 048
  4. LISINOPRIL [Concomitant]
     Dosage: 5 G
     Route: 065
     Dates: start: 2011
  5. ASPIRIN 81 G [Concomitant]
     Indication: PERIPHERAL VASCULAR DISORDER
     Dosage: 81 G
     Route: 065
     Dates: start: 2011
  6. SPIRIVA [Concomitant]
     Indication: CHRONIC OBSTRUCTIVE PULMONARY DISEASE
     Dosage: 18 MCG
     Route: 065
     Dates: start: 2011

REACTIONS (4)
  - Epistaxis [Not Recovered/Not Resolved]
  - Dyspnoea [Not Recovered/Not Resolved]
  - Epistaxis [Recovered/Resolved]
  - Epistaxis [Recovered/Resolved]
